FAERS Safety Report 10168703 (Version 1)
Quarter: 2014Q2

REPORT INFORMATION
  Report Type: Spontaneous
  Country: US (occurrence: None)
  Receive Date: 20140512
  Receipt Date: 20140512
  Transmission Date: 20141212
  Serious: Yes (Hospitalization)
  Sender: FDA-Public Use
  Company Number: None

PATIENT
  Age: 38 Year
  Sex: Female
  Weight: 47.63 kg

DRUGS (1)
  1. TRAMADOL HCL 50 MG TAB [Suspect]
     Indication: INJURY
     Dosage: I BELIEVE 1 PILL EVERY 6 HOURS, TWICE DAILY, TAKEN BY MOUTH
     Route: 048
     Dates: start: 20140325, end: 20140420

REACTIONS (9)
  - Muscular weakness [None]
  - Hypoaesthesia [None]
  - Sensory loss [None]
  - Neck pain [None]
  - Limb discomfort [None]
  - Paraesthesia [None]
  - Vision blurred [None]
  - Muscle spasms [None]
  - Miosis [None]
